FAERS Safety Report 15983194 (Version 2)
Quarter: 2019Q1

REPORT INFORMATION
  Report Type: Report from Study
  Country: None (occurrence: US)
  Receive Date: 20190220
  Receipt Date: 20190330
  Transmission Date: 20190418
  Serious: Yes (Hospitalization)
  Sender: FDA-Public Use
  Company Number: US-ABBVIE-19K-163-2669845-00

PATIENT
  Age: 82 Year
  Sex: Female
  Weight: 102.15 kg

DRUGS (16)
  1. TYLENOL [Concomitant]
     Active Substance: ACETAMINOPHEN
     Indication: PAIN
  2. FOLIC ACID. [Concomitant]
     Active Substance: FOLIC ACID
     Indication: LIVER DISORDER
  3. D-3 [Concomitant]
     Active Substance: CHOLECALCIFEROL
     Indication: PRODUCT USED FOR UNKNOWN INDICATION
  4. KLOR-CON M10 [Concomitant]
     Active Substance: POTASSIUM CHLORIDE
     Indication: BLOOD POTASSIUM DECREASED
  5. METHENAMINE [Concomitant]
     Active Substance: METHENAMINE
     Indication: BLADDER DISORDER
  6. ELLURA [Concomitant]
     Active Substance: DIETARY SUPPLEMENT
     Indication: BLADDER DISORDER
  7. VITAMIN C [Concomitant]
     Active Substance: ASCORBIC ACID
     Indication: BLADDER DISORDER
  8. HUMIRA [Suspect]
     Active Substance: ADALIMUMAB
     Indication: PSORIATIC ARTHROPATHY
     Route: 058
     Dates: start: 2017
  9. ALLOPURINOL. [Concomitant]
     Active Substance: ALLOPURINOL
     Indication: GOUT
  10. PANTOPRAZOLE [Concomitant]
     Active Substance: PANTOPRAZOLE
     Indication: GASTROOESOPHAGEAL REFLUX DISEASE
  11. METHOTREXATE. [Concomitant]
     Active Substance: METHOTREXATE
     Indication: BLADDER DISORDER
  12. PROBIOTIC [Concomitant]
     Active Substance: PROBIOTICS NOS
     Indication: HYPERCHLORHYDRIA
  13. LORATADINE. [Concomitant]
     Active Substance: LORATADINE
     Indication: PRODUCT USED FOR UNKNOWN INDICATION
  14. ESCITALOPRAM [Concomitant]
     Active Substance: ESCITALOPRAM OXALATE
     Indication: DEPRESSION
  15. TIROSINT [Concomitant]
     Active Substance: LEVOTHYROXINE SODIUM
     Indication: THYROID DISORDER
  16. D-MANNOSE [Concomitant]
     Indication: BLADDER DISORDER

REACTIONS (4)
  - Blood glucose decreased [Unknown]
  - Heart rate decreased [Unknown]
  - Malaise [Unknown]
  - Dehydration [Unknown]

NARRATIVE: CASE EVENT DATE: 20190324
